FAERS Safety Report 19872070 (Version 1)
Quarter: 2021Q3

REPORT INFORMATION
  Report Type: Spontaneous
  Country: SA (occurrence: SA)
  Receive Date: 20210922
  Receipt Date: 20210922
  Transmission Date: 20211014
  Serious: Yes (Other)
  Sender: FDA-Public Use
  Company Number: SA-BAYER-2021A214823

PATIENT
  Age: 53 Year
  Sex: Male

DRUGS (5)
  1. STIVARGA [Suspect]
     Active Substance: REGORAFENIB
     Indication: HEPATOCELLULAR CARCINOMA
     Dosage: 80 MG, QD
     Route: 048
  2. ATEZOLIZUMAB;BEVACIZUMAB [Concomitant]
  3. STIVARGA [Suspect]
     Active Substance: REGORAFENIB
     Indication: HEPATOCELLULAR CARCINOMA
     Dosage: 160 MG, QD FOR 3 WEEK ON AND 1 WEEK OFF
     Route: 048
  4. NEXAVAR [Suspect]
     Active Substance: SORAFENIB
     Indication: HEPATOCELLULAR CARCINOMA
     Dosage: 200 MG, BID FOR 2 WEEKS
     Route: 048
  5. NEXAVAR [Suspect]
     Active Substance: SORAFENIB
     Indication: HEPATOCELLULAR CARCINOMA
     Dosage: 400 MG, BID
     Route: 048

REACTIONS (7)
  - Hepatocellular carcinoma [None]
  - Off label use [None]
  - Back pain [None]
  - Palmar-plantar erythrodysaesthesia syndrome [None]
  - Hepatic lesion [None]
  - Metastases to bone [None]
  - Rash [None]
